FAERS Safety Report 9440148 (Version 3)
Quarter: 2013Q4

REPORT INFORMATION
  Report Type: Spontaneous
  Country: US (occurrence: US)
  Receive Date: 20130805
  Receipt Date: 20131031
  Transmission Date: 20140711
  Serious: Yes (Other)
  Sender: FDA-Public Use
  Company Number: US-PFIZER INC-2013225957

PATIENT
  Age: 65 Year
  Sex: Female

DRUGS (2)
  1. LYRICA [Suspect]
     Indication: RADICULAR PAIN
     Dosage: 50 MG, 3X/DAY
     Route: 048
     Dates: start: 20130729, end: 20130731
  2. LYRICA [Suspect]
     Indication: PAIN IN EXTREMITY

REACTIONS (6)
  - Hypersensitivity [Unknown]
  - Pharyngeal oedema [Recovered/Resolved]
  - Swollen tongue [Recovered/Resolved]
  - Throat tightness [Unknown]
  - Headache [Unknown]
  - Dizziness [Unknown]
